FAERS Safety Report 7422193-4 (Version None)
Quarter: 2011Q2

REPORT INFORMATION
  Report Type: 
  Country: None (occurrence: None)
  Receive Date: 20110418
  Receipt Date: 20110304
  Transmission Date: 20111010
  Serious: Yes (Hospitalization, Other)
  Sender: FDA-Public Use
  Company Number: US-BAYER-201029498NA

PATIENT
  Age: 14 Year
  Sex: Female
  Weight: 82.9 kg

DRUGS (7)
  1. OXYCODONE HCL AND ACETAMINOPHEN [Concomitant]
     Dosage: 5 MG, PRN
     Route: 048
  2. ANTIINFLAMMATORY/ANTIRHEUMATIC NON-STEROIDS [Concomitant]
  3. AZITHROMYCIN [Concomitant]
     Dosage: 250 MG, QD
     Route: 048
     Dates: start: 20080614, end: 20080619
  4. LOVENOX [Concomitant]
     Dosage: 80 MG, BID
  5. YASMIN [Suspect]
     Indication: ACNE
     Dosage: UNK
     Route: 048
     Dates: start: 20080125, end: 20080601
  6. FLUCONAZOLE [Concomitant]
     Dosage: 100 MG, QD
  7. XOPENEX [Concomitant]
     Dosage: UNK
     Route: 055

REACTIONS (2)
  - PULMONARY EMBOLISM [None]
  - INJURY [None]
